FAERS Safety Report 22655124 (Version 1)
Quarter: 2023Q2

REPORT INFORMATION
  Report Type: Spontaneous
  Country: US (occurrence: None)
  Receive Date: 20230628
  Receipt Date: 20230628
  Transmission Date: 20230722
  Serious: No
  Sender: FDA-Public Use
  Company Number: None

PATIENT
  Age: 23 Year
  Sex: Female
  Weight: 58.5 kg

DRUGS (4)
  1. ETONOGESTREL/ETHINYL ESTRADIOL [Suspect]
     Active Substance: ETHINYL ESTRADIOL\ETONOGESTREL
     Indication: Contraception
  2. SPIRTONOLAONE [Concomitant]
  3. VITAMINS [Concomitant]
     Active Substance: VITAMINS
  4. MAGNWESIUM GLYCINATE [Concomitant]

REACTIONS (1)
  - Decidual cast [None]

NARRATIVE: CASE EVENT DATE: 20230601
